FAERS Safety Report 19695055 (Version 5)
Quarter: 2022Q1

REPORT INFORMATION
  Report Type: Spontaneous
  Country: JP (occurrence: JP)
  Receive Date: 20210813
  Receipt Date: 20220325
  Transmission Date: 20220423
  Serious: Yes (Hospitalization)
  Sender: FDA-Public Use
  Company Number: JP-JNJFOC-A-CH2013-77422

PATIENT
  Age: 26 Year
  Sex: Male

DRUGS (36)
  1. MIGLUSTAT [Interacting]
     Active Substance: MIGLUSTAT
     Indication: Niemann-Pick disease
     Dosage: 200 MG, TID
     Route: 048
     Dates: start: 20121210, end: 20121213
  2. MIGLUSTAT [Interacting]
     Active Substance: MIGLUSTAT
     Dosage: 100 MG, TID
     Route: 048
     Dates: start: 20121214, end: 20130201
  3. MIGLUSTAT [Interacting]
     Active Substance: MIGLUSTAT
     Dosage: 200MG Q.D. + 100MG Q.D. + 100MG Q.D.
     Route: 048
     Dates: start: 20130202, end: 20130228
  4. MIGLUSTAT [Interacting]
     Active Substance: MIGLUSTAT
     Dosage: 200MG Q.D. + 200MG Q.D. + 100MG Q.D
     Route: 048
     Dates: start: 20130301, end: 20150209
  5. MIGLUSTAT [Interacting]
     Active Substance: MIGLUSTAT
     Dosage: 200MG Q.D. + 200MG Q.D. + 100MG Q.D.
     Route: 048
     Dates: start: 20150213, end: 20150302
  6. MIGLUSTAT [Interacting]
     Active Substance: MIGLUSTAT
     Dosage: 200MG Q.D. + 200MG Q.D. + 100MG Q.D
     Route: 048
     Dates: start: 20150309, end: 20150917
  7. MIGLUSTAT [Interacting]
     Active Substance: MIGLUSTAT
     Dosage: 200 MG, TID
     Route: 048
     Dates: start: 20150918
  8. UNASYN [Interacting]
     Active Substance: AMPICILLIN SODIUM\SULBACTAM SODIUM
     Indication: Pneumonia aspiration
     Dosage: 3 G, QID
     Route: 042
     Dates: start: 20150209, end: 20150216
  9. UNASYN [Interacting]
     Active Substance: AMPICILLIN SODIUM\SULBACTAM SODIUM
     Indication: Pyrexia
     Dosage: 3 G, QID
     Route: 042
     Dates: start: 20150227, end: 20150302
  10. UNASYN [Interacting]
     Active Substance: AMPICILLIN SODIUM\SULBACTAM SODIUM
     Dosage: 3 G, QID
     Route: 042
     Dates: start: 20150520, end: 20150525
  11. URSO [Concomitant]
     Active Substance: URSODIOL
     Indication: Liver disorder
     Route: 048
  12. URSO [Concomitant]
     Active Substance: URSODIOL
     Route: 048
     Dates: end: 20210616
  13. ARTANE [Concomitant]
     Active Substance: TRIHEXYPHENIDYL HYDROCHLORIDE
     Indication: Dystonia
     Route: 048
     Dates: start: 20120905, end: 20130215
  14. ARTANE [Concomitant]
     Active Substance: TRIHEXYPHENIDYL HYDROCHLORIDE
     Route: 048
     Dates: start: 20130215, end: 20130812
  15. ARTANE [Concomitant]
     Active Substance: TRIHEXYPHENIDYL HYDROCHLORIDE
     Route: 048
     Dates: start: 20130813, end: 20140318
  16. ARTANE [Concomitant]
     Active Substance: TRIHEXYPHENIDYL HYDROCHLORIDE
     Route: 048
     Dates: start: 20140319
  17. LORATADINE [Concomitant]
     Active Substance: LORATADINE
     Indication: Rhinitis allergic
     Route: 048
     Dates: start: 20150326
  18. BISOLVON [Concomitant]
     Active Substance: BROMHEXINE HYDROCHLORIDE
     Indication: Sputum retention
     Route: 048
     Dates: start: 20151223
  19. AMBROXOL [Concomitant]
     Active Substance: AMBROXOL
     Indication: Sputum retention
     Route: 048
     Dates: start: 20151223
  20. SODIUM CHLORIDE [Concomitant]
     Active Substance: SODIUM CHLORIDE
     Indication: Fluid replacement
     Route: 042
     Dates: start: 20150209, end: 20150209
  21. AMINO ACIDS\DEXTROSE\ELECTROLYTES NOS\VITAMINS [Concomitant]
     Active Substance: AMINO ACIDS\DEXTROSE\ELECTROLYTES NOS\VITAMINS
     Indication: Fluid replacement
     Route: 042
     Dates: start: 20150211, end: 20150217
  22. AMINO ACIDS\DEXTROSE\ELECTROLYTES NOS\VITAMINS [Concomitant]
     Active Substance: AMINO ACIDS\DEXTROSE\ELECTROLYTES NOS\VITAMINS
     Route: 042
     Dates: start: 20150228, end: 20150305
  23. AMINO ACIDS\DEXTROSE\ELECTROLYTES NOS\VITAMINS [Concomitant]
     Active Substance: AMINO ACIDS\DEXTROSE\ELECTROLYTES NOS\VITAMINS
     Route: 042
     Dates: start: 20150521, end: 20150527
  24. HYDROXYZINE HYDROCHLORIDE [Concomitant]
     Active Substance: HYDROXYZINE HYDROCHLORIDE
     Indication: Sedation
     Route: 042
     Dates: start: 20150223, end: 20150223
  25. VEEN D [Concomitant]
     Active Substance: CALCIUM CHLORIDE\DEXTROSE\POTASSIUM CHLORIDE\SODIUM ACETATE\SODIUM CHLORIDE
     Indication: Fluid replacement
     Route: 042
     Dates: start: 20150210, end: 20150210
  26. VEEN D [Concomitant]
     Active Substance: CALCIUM CHLORIDE\DEXTROSE\POTASSIUM CHLORIDE\SODIUM ACETATE\SODIUM CHLORIDE
     Route: 042
     Dates: start: 20150211, end: 20150224
  27. VEEN D [Concomitant]
     Active Substance: CALCIUM CHLORIDE\DEXTROSE\POTASSIUM CHLORIDE\SODIUM ACETATE\SODIUM CHLORIDE
     Route: 042
     Dates: start: 20150228, end: 20150305
  28. VEEN D [Concomitant]
     Active Substance: CALCIUM CHLORIDE\DEXTROSE\POTASSIUM CHLORIDE\SODIUM ACETATE\SODIUM CHLORIDE
     Route: 042
     Dates: start: 20150520, end: 20150526
  29. POTASSIUM CHLORIDE\SODIUM CHLORIDE\SODIUM LACTATE [Concomitant]
     Active Substance: POTASSIUM CHLORIDE\SODIUM CHLORIDE\SODIUM LACTATE
     Indication: Fluid replacement
     Route: 042
     Dates: start: 20150227, end: 20150227
  30. POTASSIUM CHLORIDE\SODIUM CHLORIDE\SODIUM LACTATE [Concomitant]
     Active Substance: POTASSIUM CHLORIDE\SODIUM CHLORIDE\SODIUM LACTATE
     Route: 042
     Dates: start: 20150520, end: 20150520
  31. INFLUENZA VIRUS VACCINE [Concomitant]
     Active Substance: INFLUENZA VIRUS VACCINE
     Indication: Antiviral prophylaxis
     Route: 058
     Dates: start: 20161128, end: 20161128
  32. CALCIUM CHLORIDE\MAGNESIUM CHLORIDE\POTASSIUM CHLORIDE\SODIUM ACETATE\ [Concomitant]
     Active Substance: CALCIUM CHLORIDE\MAGNESIUM CHLORIDE\POTASSIUM CHLORIDE\SODIUM ACETATE\SODIUM CHLORIDE
     Indication: Fluid replacement
     Route: 042
     Dates: start: 20150210, end: 20150210
  33. MIYA-BM [Concomitant]
     Active Substance: CLOSTRIDIUM BUTYRICUM SPORES STRAIN M-55
     Indication: Prophylaxis against diarrhoea
     Route: 048
     Dates: start: 20130201, end: 20131021
  34. MIYA-BM [Concomitant]
     Active Substance: CLOSTRIDIUM BUTYRICUM SPORES STRAIN M-55
     Route: 048
     Dates: start: 20131022, end: 20210616
  35. FEXOFENADINE HYDROCHLORIDE [Concomitant]
     Active Substance: FEXOFENADINE HYDROCHLORIDE
     Indication: Rhinitis allergic
     Route: 048
     Dates: start: 20171222
  36. MAGNESIUM OXIDE [Concomitant]
     Active Substance: MAGNESIUM OXIDE
     Indication: Constipation
     Route: 048
     Dates: start: 20170209

REACTIONS (11)
  - Pneumonia aspiration [Recovered/Resolved]
  - Aspiration [Recovered/Resolved]
  - Diarrhoea [Recovered/Resolved]
  - Nausea [Recovered/Resolved]
  - Drug interaction [Recovered/Resolved]
  - Cytopenia [Recovered/Resolved]
  - White blood cell count decreased [Recovered/Resolved]
  - Platelet count decreased [Recovered/Resolved]
  - Red blood cell count decreased [Recovered/Resolved]
  - Pyrexia [Recovered/Resolved]
  - Constipation [Not Recovered/Not Resolved]

NARRATIVE: CASE EVENT DATE: 20121213
